FAERS Safety Report 12197334 (Version 1)
Quarter: 2016Q1

REPORT INFORMATION
  Report Type: Report from Study
  Country: US (occurrence: US)
  Receive Date: 20160322
  Receipt Date: 20160322
  Transmission Date: 20160526
  Serious: No
  Sender: FDA-Public Use
  Company Number: US-AMGEN-USASL2016033920

PATIENT
  Age: 63 Year
  Sex: Male

DRUGS (1)
  1. ENBREL [Suspect]
     Active Substance: ETANERCEPT
     Indication: PRODUCT USED FOR UNKNOWN INDICATION
     Dosage: 50 MG, QWK
     Route: 065

REACTIONS (7)
  - Injection site erythema [Unknown]
  - White blood cell count abnormal [Not Recovered/Not Resolved]
  - Retching [Unknown]
  - Hypertension [Recovering/Resolving]
  - Injection site haemorrhage [Unknown]
  - Injection site mass [Unknown]
  - Injection site scab [Unknown]
